FAERS Safety Report 11409894 (Version 20)
Quarter: 2022Q1

REPORT INFORMATION
  Report Type: Spontaneous
  Country: CA (occurrence: CA)
  Receive Date: 20150824
  Receipt Date: 20220307
  Transmission Date: 20220423
  Serious: Yes (Hospitalization, Other)
  Sender: FDA-Public Use
  Company Number: CA-AUROBINDO-AUR-APL-2015-07336

PATIENT
  Age: 77 Year
  Sex: Female

DRUGS (310)
  1. AMLODIPINE [Suspect]
     Active Substance: AMLODIPINE BESYLATE
     Indication: Coronary artery disease
     Dosage: 5 MILLIGRAM, ONCE A DAY
     Route: 065
  2. AMLODIPINE [Suspect]
     Active Substance: AMLODIPINE BESYLATE
     Indication: Hypertension
     Dosage: UNK
     Route: 065
  3. AMLODIPINE [Suspect]
     Active Substance: AMLODIPINE BESYLATE
     Indication: Angina pectoris
  4. AMLODIPINE [Suspect]
     Active Substance: AMLODIPINE BESYLATE
     Indication: Constipation
  5. AMLODIPINE [Suspect]
     Active Substance: AMLODIPINE BESYLATE
     Indication: Chest pain
  6. AMLODIPINE [Suspect]
     Active Substance: AMLODIPINE BESYLATE
     Indication: Coronary artery disease
     Dosage: 5 MILLIGRAM, ONCE A DAY
     Route: 065
  7. AMLODIPINE [Suspect]
     Active Substance: AMLODIPINE BESYLATE
     Indication: Hypertension
     Dosage: 50 MILLIGRAM, ONCE A DAY
     Route: 065
  8. AMLODIPINE [Suspect]
     Active Substance: AMLODIPINE BESYLATE
     Indication: Angina pectoris
  9. AMLODIPINE [Suspect]
     Active Substance: AMLODIPINE BESYLATE
     Indication: Constipation
  10. AMLODIPINE [Suspect]
     Active Substance: AMLODIPINE BESYLATE
     Indication: Chest pain
  11. CYCLOBENZAPRINE [Suspect]
     Active Substance: CYCLOBENZAPRINE
     Indication: Fibromyalgia
     Dosage: 1.87 MILLIGRAM
     Route: 065
  12. CYCLOBENZAPRINE [Suspect]
     Active Substance: CYCLOBENZAPRINE
     Indication: Seizure prophylaxis
     Dosage: 5 MILLIGRAM, TWO TIMES A DAY
     Route: 065
  13. CYCLOBENZAPRINE [Suspect]
     Active Substance: CYCLOBENZAPRINE
     Indication: Pain
     Dosage: 45 MILLIGRAM, ONCE A DAY
     Route: 065
  14. CYCLOBENZAPRINE [Suspect]
     Active Substance: CYCLOBENZAPRINE
     Indication: Seizure
     Dosage: 100 MILLIGRAM, TWO TIMES A DAY
     Route: 065
  15. CYCLOBENZAPRINE [Suspect]
     Active Substance: CYCLOBENZAPRINE
     Dosage: 0.36 MILLIGRAM
     Route: 065
  16. CYCLOBENZAPRINE [Suspect]
     Active Substance: CYCLOBENZAPRINE
     Dosage: 5 MILLIGRAM, 3 TIMES A DAY
     Route: 065
  17. CYCLOBENZAPRINE [Suspect]
     Active Substance: CYCLOBENZAPRINE
     Dosage: 2 MILLIGRAM, ONCE A DAY
     Route: 065
  18. CYCLOBENZAPRINE [Suspect]
     Active Substance: CYCLOBENZAPRINE
     Dosage: 5.61 MILLIGRAM, ONCE A DAY
     Route: 065
  19. CYCLOBENZAPRINE [Suspect]
     Active Substance: CYCLOBENZAPRINE
     Dosage: 500 MILLIGRAM, 3 TIMES A DAY
     Route: 065
  20. CYCLOBENZAPRINE [Suspect]
     Active Substance: CYCLOBENZAPRINE
     Dosage: 10 MILLIGRAM, ONCE A DAY
     Route: 065
  21. CYCLOBENZAPRINE [Suspect]
     Active Substance: CYCLOBENZAPRINE
     Dosage: 0.63 MILLIGRAM
     Route: 065
  22. CYCLOBENZAPRINE [Suspect]
     Active Substance: CYCLOBENZAPRINE
     Dosage: 200 MILLIGRAM, TWO TIMES A DAY
     Route: 065
  23. CYCLOBENZAPRINE [Suspect]
     Active Substance: CYCLOBENZAPRINE
     Dosage: 15 MILLIGRAM, 3 TIMES A DAY
     Route: 065
  24. CYCLOBENZAPRINE [Suspect]
     Active Substance: CYCLOBENZAPRINE
     Indication: Seizure
     Dosage: 5 MILLIGRAM, TWO TIMES A DAY
     Route: 065
  25. CYCLOBENZAPRINE [Suspect]
     Active Substance: CYCLOBENZAPRINE
     Indication: Seizure prophylaxis
     Dosage: 5 MILLIGRAM, ONCE A DAY AT BED TIME
     Route: 065
  26. CYCLOBENZAPRINE [Suspect]
     Active Substance: CYCLOBENZAPRINE
     Indication: Pain
     Dosage: 5 MILLIGRAM, 3 TIMES A DAY
     Route: 065
  27. CYCLOBENZAPRINE [Suspect]
     Active Substance: CYCLOBENZAPRINE
     Indication: Fibromyalgia
     Dosage: 15 MILLIGRAM, 3 TIMES A DAY
     Route: 065
  28. CYCLOBENZAPRINE [Suspect]
     Active Substance: CYCLOBENZAPRINE
     Dosage: 1.87 MILLIGRAM, ONCE A DAY
     Route: 065
  29. CYCLOBENZAPRINE [Suspect]
     Active Substance: CYCLOBENZAPRINE
     Dosage: 100 MILLIGRAM, TWO TIMES A DAY
     Route: 065
  30. CYCLOBENZAPRINE [Suspect]
     Active Substance: CYCLOBENZAPRINE
     Dosage: 200 MILLIGRAM, TWO TIMES A DAY
     Route: 065
  31. CYCLOBENZAPRINE [Suspect]
     Active Substance: CYCLOBENZAPRINE
     Dosage: 10 MILLIGRAM, ONCE A DAY
     Route: 065
  32. FUROSEMIDE [Suspect]
     Active Substance: FUROSEMIDE
     Indication: Oedema
     Dosage: 40 MILLIGRAM, ONCE A DAY
     Route: 061
  33. FUROSEMIDE [Suspect]
     Active Substance: FUROSEMIDE
     Indication: Coronary artery disease
     Dosage: 4 MILLIGRAM, ONCE A DAY
     Route: 065
  34. FUROSEMIDE [Suspect]
     Active Substance: FUROSEMIDE
     Indication: Angina pectoris
     Dosage: UNK
     Route: 065
  35. FUROSEMIDE [Suspect]
     Active Substance: FUROSEMIDE
     Indication: Chest pain
  36. GALANTAMINE [Suspect]
     Active Substance: GALANTAMINE
     Indication: Dementia
     Dosage: 16 MILLIGRAM, ONCE A DAY
     Route: 065
  37. GALANTAMINE [Suspect]
     Active Substance: GALANTAMINE
     Dosage: 18 MILLIGRAM, ONCE A DAY
  38. LEVOFLOXACIN [Suspect]
     Active Substance: LEVOFLOXACIN
     Indication: Urinary tract infection
     Dosage: 250 MILLIGRAM, ONCE A DAY
     Route: 065
  39. LEVOFLOXACIN [Suspect]
     Active Substance: LEVOFLOXACIN
     Indication: Thyroid disorder
     Dosage: UNK
     Route: 065
  40. LEVOFLOXACIN [Suspect]
     Active Substance: LEVOFLOXACIN
     Indication: Radioactive iodine therapy
     Dosage: 250 MILLIGRAM, TWO TIMES A DAY
     Route: 065
  41. OMEPRAZOLE [Suspect]
     Active Substance: OMEPRAZOLE
     Indication: Duodenal ulcer
     Dosage: 20 MILLIGRAM, ONCE A DAY
     Route: 048
  42. OMEPRAZOLE [Suspect]
     Active Substance: OMEPRAZOLE
     Indication: Small intestine carcinoma
     Dosage: 20 MILLIGRAM, TWO TIMES A DAY
     Route: 048
  43. OMEPRAZOLE [Suspect]
     Active Substance: OMEPRAZOLE
     Indication: Chest pain
  44. OMEPRAZOLE [Suspect]
     Active Substance: OMEPRAZOLE
     Indication: Coronary artery disease
  45. OMEPRAZOLE [Suspect]
     Active Substance: OMEPRAZOLE
     Indication: Hypertension
  46. ROSUVASTATIN [Suspect]
     Active Substance: ROSUVASTATIN
     Indication: Angina pectoris
     Dosage: UNK
     Route: 065
  47. ROSUVASTATIN [Suspect]
     Active Substance: ROSUVASTATIN
     Indication: Insomnia
     Dosage: 20 MILLIGRAM, TWO TIMES A DAY
     Route: 048
  48. ROSUVASTATIN [Suspect]
     Active Substance: ROSUVASTATIN
     Indication: Chest pain
     Dosage: 20 MILLIGRAM, ONCE A DAY
     Route: 048
  49. ROSUVASTATIN [Suspect]
     Active Substance: ROSUVASTATIN
     Indication: Coronary artery disease
     Dosage: 400 MILLIGRAM, ONCE A DAY
     Route: 048
  50. ROSUVASTATIN [Suspect]
     Active Substance: ROSUVASTATIN
     Indication: Cerebrovascular accident
  51. ROSUVASTATIN [Suspect]
     Active Substance: ROSUVASTATIN
     Indication: Cerebrovascular accident
     Dosage: 20 MILLIGRAM, TWO TIMES A DAY
     Route: 048
  52. ROSUVASTATIN [Suspect]
     Active Substance: ROSUVASTATIN
     Indication: Hypertension
     Dosage: 10 MILLIGRAM, ONCE A DAY
     Route: 048
  53. ROSUVASTATIN [Suspect]
     Active Substance: ROSUVASTATIN
     Indication: Angina pectoris
     Dosage: 200 MILLIGRAM, TWO TIMES A DAY
     Route: 048
  54. ROSUVASTATIN [Suspect]
     Active Substance: ROSUVASTATIN
     Indication: Insomnia
     Dosage: 20 MILLIGRAM, EVERY OTHER DAY
     Route: 065
  55. ROSUVASTATIN [Suspect]
     Active Substance: ROSUVASTATIN
     Indication: Chronic obstructive pulmonary disease
  56. ROSUVASTATIN [Suspect]
     Active Substance: ROSUVASTATIN
     Indication: Chest pain
  57. ROSUVASTATIN [Suspect]
     Active Substance: ROSUVASTATIN
     Indication: Coronary artery disease
  58. ACCUPRIL [Suspect]
     Active Substance: QUINAPRIL HYDROCHLORIDE
     Indication: Coronary artery disease
     Dosage: 200 MILLIGRAM, ONCE A DAY
     Route: 065
  59. ACCUPRIL [Suspect]
     Active Substance: QUINAPRIL HYDROCHLORIDE
     Indication: Hypertension
     Dosage: 40 MILLIGRAM, ONCE A DAY
     Route: 065
  60. ACCUPRIL [Suspect]
     Active Substance: QUINAPRIL HYDROCHLORIDE
     Indication: Chest pain
     Dosage: 20 MILLIGRAM, ONCE A DAY
     Route: 065
  61. ACCUPRIL [Suspect]
     Active Substance: QUINAPRIL HYDROCHLORIDE
     Indication: Angina pectoris
  62. ACCUPRIL [Suspect]
     Active Substance: QUINAPRIL HYDROCHLORIDE
     Indication: Seizure prophylaxis
  63. ACCUPRIL [Suspect]
     Active Substance: QUINAPRIL HYDROCHLORIDE
     Indication: Seizure
  64. ACCUPRIL [Suspect]
     Active Substance: QUINAPRIL HYDROCHLORIDE
     Indication: Insomnia
  65. ACCUPRIL [Suspect]
     Active Substance: QUINAPRIL HYDROCHLORIDE
     Indication: Fibromyalgia
  66. ACCUPRIL [Suspect]
     Active Substance: QUINAPRIL HYDROCHLORIDE
     Indication: Cerebrovascular accident
  67. ACEBUTOLOL HYDROCHLORIDE [Suspect]
     Active Substance: ACEBUTOLOL HYDROCHLORIDE
     Indication: Coronary artery disease
     Dosage: 200 MILLIGRAM, TWO TIMES A DAY (400 MG ONCE A DAY)
     Route: 065
  68. ACEBUTOLOL HYDROCHLORIDE [Suspect]
     Active Substance: ACEBUTOLOL HYDROCHLORIDE
     Indication: Hypertension
     Dosage: 100 MILLIGRAM, ONCE A DAY
     Route: 065
  69. ACEBUTOLOL HYDROCHLORIDE [Suspect]
     Active Substance: ACEBUTOLOL HYDROCHLORIDE
     Indication: Chest pain
     Dosage: 50 MILLIGRAM, TWO TIMES A DAY
     Route: 065
  70. ACEBUTOLOL HYDROCHLORIDE [Suspect]
     Active Substance: ACEBUTOLOL HYDROCHLORIDE
     Indication: Angina pectoris
     Dosage: 100 MILLIGRAM, TWO TIMES A DAY (200 MG ONCE A DAY)
     Route: 065
  71. ACEBUTOLOL HYDROCHLORIDE [Suspect]
     Active Substance: ACEBUTOLOL HYDROCHLORIDE
     Indication: Constipation
     Dosage: 200 MILLIGRAM, FOR EVERY 5 DAYS
     Route: 065
  72. ACEBUTOLOL HYDROCHLORIDE [Suspect]
     Active Substance: ACEBUTOLOL HYDROCHLORIDE
     Dosage: 100 MILLIGRAM, ONE EVERY 5 DAYS
     Route: 065
  73. ACEBUTOLOL HYDROCHLORIDE [Suspect]
     Active Substance: ACEBUTOLOL HYDROCHLORIDE
     Dosage: 100 MILLIGRAM, EVERY OTHER DAY
     Route: 065
  74. ACEBUTOLOL HYDROCHLORIDE [Suspect]
     Active Substance: ACEBUTOLOL HYDROCHLORIDE
     Dosage: 200 MILLIGRAM, FOR EVERY 5 WEEKS
     Route: 065
  75. ACEBUTOLOL HYDROCHLORIDE [Suspect]
     Active Substance: ACEBUTOLOL HYDROCHLORIDE
     Dosage: 400 MILLIGRAM, EVERY WEEK
     Route: 065
  76. ACEBUTOLOL HYDROCHLORIDE [Suspect]
     Active Substance: ACEBUTOLOL HYDROCHLORIDE
     Dosage: 200 MILLIGRAM, EVERY 84 HOURS
     Route: 065
  77. ACEBUTOLOL HYDROCHLORIDE [Suspect]
     Active Substance: ACEBUTOLOL HYDROCHLORIDE
     Dosage: 200 MILLIGRAM, EVERY 5 DAYS
     Route: 065
  78. ACEBUTOLOL HYDROCHLORIDE [Suspect]
     Active Substance: ACEBUTOLOL HYDROCHLORIDE
     Dosage: 400 MILLIGRAM, 4.8 HR
     Route: 065
  79. ACEBUTOLOL HYDROCHLORIDE [Suspect]
     Active Substance: ACEBUTOLOL HYDROCHLORIDE
     Dosage: 400 MILLIGRAM, ONCE A DAY
     Route: 065
  80. ACEBUTOLOL HYDROCHLORIDE [Suspect]
     Active Substance: ACEBUTOLOL HYDROCHLORIDE
     Dosage: 200 MILLIGRAM, ONCE A DAY
     Route: 065
  81. ACEBUTOLOL HYDROCHLORIDE [Suspect]
     Active Substance: ACEBUTOLOL HYDROCHLORIDE
     Dosage: 200 MILLIGRAM, EVERY WEEK
     Route: 065
  82. ACETAMINOPHEN [Suspect]
     Active Substance: ACETAMINOPHEN
     Indication: Pain
     Dosage: 650 MILLIGRAM EVERY 4-6 HOURS AS NEEDED
     Route: 065
  83. ACETAMINOPHEN [Suspect]
     Active Substance: ACETAMINOPHEN
     Indication: Fibromyalgia
     Dosage: UNK
     Route: 065
  84. ACETAMINOPHEN\CAFFEINE [Suspect]
     Active Substance: ACETAMINOPHEN\CAFFEINE
     Indication: Pain
     Dosage: 650 MILLIGRAM, ONCE A DAY
     Route: 065
  85. ACETAMINOPHEN\CAFFEINE [Suspect]
     Active Substance: ACETAMINOPHEN\CAFFEINE
     Indication: Hypertension
     Dosage: 60 MILLIGRAM, ONCE A DAY
     Route: 065
  86. ACETAMINOPHEN\CAFFEINE [Suspect]
     Active Substance: ACETAMINOPHEN\CAFFEINE
     Indication: Chronic obstructive pulmonary disease
     Dosage: 50 MILLIGRAM, ONCE A DAY
     Route: 065
  87. ACETAMINOPHEN\CAFFEINE [Suspect]
     Active Substance: ACETAMINOPHEN\CAFFEINE
     Indication: Coronary artery disease
     Dosage: 850 MILLIGRAM, ONCE A DAY
     Route: 065
  88. ACETAMINOPHEN\CAFFEINE [Suspect]
     Active Substance: ACETAMINOPHEN\CAFFEINE
     Indication: Angina pectoris
  89. ACETAMINOPHEN\CAFFEINE [Suspect]
     Active Substance: ACETAMINOPHEN\CAFFEINE
     Indication: Chest pain
  90. ACETAMINOPHEN\CAFFEINE [Suspect]
     Active Substance: ACETAMINOPHEN\CAFFEINE
     Indication: Cerebrovascular accident
  91. ACETAMINOPHEN\CAFFEINE [Suspect]
     Active Substance: ACETAMINOPHEN\CAFFEINE
     Indication: Radioactive iodine therapy
  92. ACETAMINOPHEN\CODEINE PHOSPHATE [Suspect]
     Active Substance: ACETAMINOPHEN\CODEINE PHOSPHATE
     Indication: Product used for unknown indication
     Dosage: UNK
     Route: 065
  93. ASPIRIN [Suspect]
     Active Substance: ASPIRIN
     Indication: Hypertension
     Dosage: UNK
     Route: 065
  94. ASPIRIN [Suspect]
     Active Substance: ASPIRIN
     Indication: Coronary artery disease
  95. ASPIRIN [Suspect]
     Active Substance: ASPIRIN
     Indication: Angina pectoris
  96. AGGRENOX [Suspect]
     Active Substance: ASPIRIN\DIPYRIDAMOLE
     Indication: Cerebrovascular accident
     Dosage: 1 DOSAGE FORM, TWO TIMES A DAY
     Route: 065
  97. AGGRENOX [Suspect]
     Active Substance: ASPIRIN\DIPYRIDAMOLE
     Dosage: 2 DOSAGE FORM, EVERY OTHER DAY
     Route: 065
  98. AGGRENOX [Suspect]
     Active Substance: ASPIRIN\DIPYRIDAMOLE
     Dosage: 2 DOSAGE FORM, ONCE A DAY
     Route: 065
  99. ALBUTEROL SULFATE\AMBROXOL HYDROCHLORIDE\GUAIFENESIN [Suspect]
     Active Substance: ALBUTEROL SULFATE\AMBROXOL HYDROCHLORIDE\GUAIFENESIN
     Indication: Product used for unknown indication
     Dosage: UNK
     Route: 065
  100. AMITRIPTYLINE [Suspect]
     Active Substance: AMITRIPTYLINE
     Indication: Insomnia
     Dosage: 75 MILLIGRAM, ONCE A DAY AT BED TIME
     Route: 065
  101. AMITRIPTYLINE [Suspect]
     Active Substance: AMITRIPTYLINE
     Dosage: 50 MILLIGRAM, ONCE A DAY
     Route: 065
  102. AMITRIPTYLINE [Suspect]
     Active Substance: AMITRIPTYLINE
     Indication: Insomnia
     Dosage: 5 MILLIGRAM, ONCE A DAY
     Route: 065
  103. AMITRIPTYLINE [Suspect]
     Active Substance: AMITRIPTYLINE
     Indication: Thyroid disorder
     Dosage: 50 MILLIGRAM, ONCE A DAY
     Route: 065
  104. AMITRIPTYLINE [Suspect]
     Active Substance: AMITRIPTYLINE
     Indication: Radioactive iodine therapy
     Dosage: 75 MILLIGRAM, ONCE A DAY
     Route: 065
  105. AMITRIPTYLINE [Suspect]
     Active Substance: AMITRIPTYLINE
     Indication: Prophylaxis
     Dosage: UNK
     Route: 065
  106. AMITRIPTYLINE [Suspect]
     Active Substance: AMITRIPTYLINE
     Indication: Oedema
  107. AMITRIPTYLINE [Suspect]
     Active Substance: AMITRIPTYLINE
     Indication: Hypertension
  108. AMITRIPTYLINE [Suspect]
     Active Substance: AMITRIPTYLINE
     Indication: Fibromyalgia
  109. AMITRIPTYLINE [Suspect]
     Active Substance: AMITRIPTYLINE
     Indication: Duodenal ulcer
  110. AMITRIPTYLINE [Suspect]
     Active Substance: AMITRIPTYLINE
     Indication: Dementia
  111. AMITRIPTYLINE [Suspect]
     Active Substance: AMITRIPTYLINE
     Indication: Coronary artery disease
  112. AMITRIPTYLINE [Suspect]
     Active Substance: AMITRIPTYLINE
     Indication: Constipation
  113. AMITRIPTYLINE [Suspect]
     Active Substance: AMITRIPTYLINE
     Indication: Chest pain
  114. AMITRIPTYLINE [Suspect]
     Active Substance: AMITRIPTYLINE
     Indication: Arthritis
  115. AMITRIPTYLINE [Suspect]
     Active Substance: AMITRIPTYLINE
     Indication: Angina pectoris
  116. AMITRIPTYLINE [Suspect]
     Active Substance: AMITRIPTYLINE
     Indication: Pain
  117. AMITRIPTYLINE HYDROCHLORIDE [Suspect]
     Active Substance: AMITRIPTYLINE HYDROCHLORIDE
     Indication: Coronary artery disease
     Dosage: UNK
     Route: 065
  118. AMITRIPTYLINE HYDROCHLORIDE [Suspect]
     Active Substance: AMITRIPTYLINE HYDROCHLORIDE
     Indication: Fibromyalgia
  119. AMITRIPTYLINE HYDROCHLORIDE [Suspect]
     Active Substance: AMITRIPTYLINE HYDROCHLORIDE
     Indication: Dementia
  120. AMITRIPTYLINE HYDROCHLORIDE [Suspect]
     Active Substance: AMITRIPTYLINE HYDROCHLORIDE
     Indication: Duodenal ulcer
  121. AMITRIPTYLINE HYDROCHLORIDE\PERPHENAZINE [Suspect]
     Active Substance: AMITRIPTYLINE HYDROCHLORIDE\PERPHENAZINE
     Indication: Product used for unknown indication
     Dosage: UNK
     Route: 065
  122. AMITRIPTYLINE HYDROCHLORIDE\PERPHENAZINE [Suspect]
     Active Substance: AMITRIPTYLINE HYDROCHLORIDE\PERPHENAZINE
     Indication: Hypertension
  123. AMITRIPTYLINE HYDROCHLORIDE\PERPHENAZINE [Suspect]
     Active Substance: AMITRIPTYLINE HYDROCHLORIDE\PERPHENAZINE
     Indication: Fibromyalgia
  124. AMITRIPTYLINE HYDROCHLORIDE\PERPHENAZINE [Suspect]
     Active Substance: AMITRIPTYLINE HYDROCHLORIDE\PERPHENAZINE
     Indication: Duodenal ulcer
  125. AMITRIPTYLINE HYDROCHLORIDE\PERPHENAZINE [Suspect]
     Active Substance: AMITRIPTYLINE HYDROCHLORIDE\PERPHENAZINE
     Indication: Dementia
  126. AMITRIPTYLINE HYDROCHLORIDE\PERPHENAZINE [Suspect]
     Active Substance: AMITRIPTYLINE HYDROCHLORIDE\PERPHENAZINE
     Indication: Coronary artery disease
  127. AMITRIPTYLINE HYDROCHLORIDE\PERPHENAZINE [Suspect]
     Active Substance: AMITRIPTYLINE HYDROCHLORIDE\PERPHENAZINE
     Indication: Constipation
  128. AMITRIPTYLINE HYDROCHLORIDE\PERPHENAZINE [Suspect]
     Active Substance: AMITRIPTYLINE HYDROCHLORIDE\PERPHENAZINE
     Indication: Chest pain
  129. AMITRIPTYLINE HYDROCHLORIDE\PERPHENAZINE [Suspect]
     Active Substance: AMITRIPTYLINE HYDROCHLORIDE\PERPHENAZINE
     Indication: Arthritis
  130. AMITRIPTYLINE HYDROCHLORIDE\PERPHENAZINE [Suspect]
     Active Substance: AMITRIPTYLINE HYDROCHLORIDE\PERPHENAZINE
     Indication: Angina pectoris
  131. AMITRIPTYLINE HYDROCHLORIDE\PERPHENAZINE [Suspect]
     Active Substance: AMITRIPTYLINE HYDROCHLORIDE\PERPHENAZINE
     Indication: Fibromyalgia
  132. AMLODIPINE\TELMISARTAN [Suspect]
     Active Substance: AMLODIPINE\TELMISARTAN
     Indication: Product used for unknown indication
     Dosage: UNK
     Route: 065
  133. AMITRIPTYLINE HYDROCHLORIDE [Suspect]
     Active Substance: AMITRIPTYLINE HYDROCHLORIDE
     Indication: Insomnia
     Dosage: 75 MILLIGRAM, ONCE A DAY
     Route: 065
  134. AMITRIPTYLINE HYDROCHLORIDE [Suspect]
     Active Substance: AMITRIPTYLINE HYDROCHLORIDE
     Dosage: UNK
     Route: 065
  135. CARBAMAZEPINE [Suspect]
     Active Substance: CARBAMAZEPINE
     Indication: Prophylaxis
     Dosage: 400 MILLIGRAM, ONCE A DAY
     Route: 065
  136. CARBAMAZEPINE [Suspect]
     Active Substance: CARBAMAZEPINE
     Indication: Fibromyalgia
     Dosage: UNK
     Route: 065
  137. CYCLOBENZAPRINE [Suspect]
     Active Substance: CYCLOBENZAPRINE
     Indication: Fibromyalgia
     Dosage: 5 MILLIGRAM, 3 TIMES A DAY
     Route: 065
  138. CYCLOBENZAPRINE [Suspect]
     Active Substance: CYCLOBENZAPRINE
     Indication: Pain
     Dosage: 15 MILLIGRAM, 3 TIMES A DAY
     Route: 065
  139. CYCLOBENZAPRINE [Suspect]
     Active Substance: CYCLOBENZAPRINE
     Dosage: 5 MILLIGRAM, TWO TIMES A DAY
     Route: 065
  140. CYCLOBENZAPRINE [Suspect]
     Active Substance: CYCLOBENZAPRINE
     Dosage: UNK
     Route: 065
  141. DILTIAZEM HYDROCHLORIDE [Suspect]
     Active Substance: DILTIAZEM HYDROCHLORIDE
     Indication: Coronary artery disease
     Dosage: 360 MILLIGRAM, ONCE A DAY
     Route: 065
  142. DILTIAZEM HYDROCHLORIDE [Suspect]
     Active Substance: DILTIAZEM HYDROCHLORIDE
     Indication: Hypertension
     Dosage: 15 MILLIGRAM, ONCE A DAY
     Route: 065
  143. DILTIAZEM HYDROCHLORIDE [Suspect]
     Active Substance: DILTIAZEM HYDROCHLORIDE
     Indication: Angina pectoris
     Dosage: 500 MILLIGRAM, ONCE A DAY
     Route: 065
  144. DILTIAZEM HYDROCHLORIDE [Suspect]
     Active Substance: DILTIAZEM HYDROCHLORIDE
     Indication: Chest pain
     Dosage: UNK
     Route: 065
  145. FUROSEMIDE [Suspect]
     Active Substance: FUROSEMIDE
     Indication: Product used for unknown indication
     Dosage: UNK
     Route: 065
  146. OXAZEPAM [Suspect]
     Active Substance: OXAZEPAM
     Indication: Insomnia
     Dosage: 15 MILLIGRAM, ONCE A DAY
     Route: 065
  147. OXAZEPAM [Suspect]
     Active Substance: OXAZEPAM
     Indication: Hypertension
     Dosage: 40 MILLIGRAM, ONCE A DAY
     Route: 065
  148. OXAZEPAM [Suspect]
     Active Substance: OXAZEPAM
     Indication: Coronary artery disease
  149. ASPIRIN [Suspect]
     Active Substance: ASPIRIN
     Indication: Hypertension
     Dosage: UNK
     Route: 065
  150. BISACODYL [Suspect]
     Active Substance: BISACODYL
     Indication: Constipation
     Dosage: 2 DOSAGE FORM, ONCE A DAY
     Route: 065
  151. BISACODYL [Suspect]
     Active Substance: BISACODYL
     Dosage: 1 DOSAGE FORM, ONCE A DAY
     Route: 065
  152. BISACODYL [Suspect]
     Active Substance: BISACODYL
     Dosage: 2 DOSAGE FORM, AS NECESSARY
     Route: 065
  153. CARBAMAZEPINE [Suspect]
     Active Substance: CARBAMAZEPINE
     Indication: Seizure
     Dosage: 200 MILLIGRAM, TWO TIMES A DAY
     Route: 065
  154. CARBAMAZEPINE [Suspect]
     Active Substance: CARBAMAZEPINE
     Indication: Seizure prophylaxis
     Dosage: 100 MILLIGRAM, TWO TIMES A DAY
     Route: 065
  155. CARBAMAZEPINE [Suspect]
     Active Substance: CARBAMAZEPINE
     Indication: Fibromyalgia
     Dosage: 2 DOSAGE FORM, ONCE A DAY
     Route: 065
  156. CARBAMAZEPINE [Suspect]
     Active Substance: CARBAMAZEPINE
     Dosage: 400 MILLIGRAM, TWO TIMES A DAY
     Route: 065
  157. CARBAMAZEPINE [Suspect]
     Active Substance: CARBAMAZEPINE
     Dosage: 400 MILLIGRAM, ONCE A DAY
     Route: 065
  158. CARBAMAZEPINE [Suspect]
     Active Substance: CARBAMAZEPINE
     Dosage: UNK
     Route: 065
  159. CARBAMAZEPINE [Suspect]
     Active Substance: CARBAMAZEPINE
     Dosage: 1 DOSAGE FORM, TWO TIMES A DAY
     Route: 065
  160. CAFFEINE [Suspect]
     Active Substance: CAFFEINE
     Indication: Product used for unknown indication
     Dosage: UNK
     Route: 065
  161. CALCIUM CARBONATE [Suspect]
     Active Substance: CALCIUM CARBONATE
     Indication: Product used for unknown indication
     Dosage: UNK
     Route: 065
  162. CRANBERRY [Suspect]
     Active Substance: CRANBERRY
     Indication: Bladder disorder
     Dosage: 500 MILLIGRAM, TWO TIMES A DAY
     Route: 065
  163. CRANBERRY [Suspect]
     Active Substance: CRANBERRY
     Dosage: 500 MILLIGRAM, 3 TIMES A DAY
     Route: 065
  164. CRANBERRY JUICE [Suspect]
     Active Substance: CRANBERRY JUICE
     Indication: Product used for unknown indication
     Dosage: UNK
     Route: 065
  165. CRANBERRY [Suspect]
     Active Substance: CRANBERRY
     Indication: Product used for unknown indication
     Dosage: UNK
     Route: 065
  166. CRANBERRY [Suspect]
     Active Substance: CRANBERRY
     Indication: Bladder disorder
     Dosage: 500 MILLIGRAM, 3 TIMES A DAY
     Route: 065
  167. DILTIAZEM [Suspect]
     Active Substance: DILTIAZEM
     Indication: Hypertension
     Dosage: 360 MILLIGRAM, ONCE A DAY
     Route: 065
  168. DILTIAZEM [Suspect]
     Active Substance: DILTIAZEM
     Indication: Coronary artery disease
     Dosage: 360 MILLIGRAM, ONCE A DAY
     Route: 065
  169. DILTIAZEM [Suspect]
     Active Substance: DILTIAZEM
     Indication: Chest pain
     Dosage: 15 MILLIGRAM, ONCE A DAY
     Route: 065
  170. DILTIAZEM [Suspect]
     Active Substance: DILTIAZEM
     Indication: Angina pectoris
  171. DILTIAZEM [Suspect]
     Active Substance: DILTIAZEM
     Indication: Coronary artery disease
     Dosage: 36 MILLIGRAM, ONCE A DAY
     Route: 065
  172. DILTIAZEM [Suspect]
     Active Substance: DILTIAZEM
     Indication: Angina pectoris
     Dosage: UNK
     Route: 065
  173. DILTIAZEM [Suspect]
     Active Substance: DILTIAZEM
     Indication: Hypertension
  174. DILTIAZEM [Suspect]
     Active Substance: DILTIAZEM
     Indication: Chest pain
  175. DIPYRIDAMOLE [Suspect]
     Active Substance: DIPYRIDAMOLE
     Indication: Cerebrovascular accident
     Dosage: 1 DOSAGE FORM, TWO TIMES A DAY
     Route: 065
  176. DIPYRIDAMOLE [Suspect]
     Active Substance: DIPYRIDAMOLE
     Dosage: 2 DOSAGE FORM, ONCE A DAY
     Route: 065
  177. DIPYRIDAMOLE [Suspect]
     Active Substance: DIPYRIDAMOLE
     Dosage: 0.5 DOSAGE FORM, ONCE A DAY
     Route: 065
  178. DIPYRIDAMOLE [Suspect]
     Active Substance: DIPYRIDAMOLE
     Dosage: UNK, ONCE EVERY 5 DAYS
     Route: 048
  179. DIPYRIDAMOLE [Suspect]
     Active Substance: DIPYRIDAMOLE
     Dosage: 2 DOSAGE FORM, EVERY OTHER DAY
     Route: 065
  180. DIPYRIDAMOLE [Suspect]
     Active Substance: DIPYRIDAMOLE
     Dosage: 2 DOSAGE FORM, TWO TIMES A DAY
     Route: 065
  181. DIPYRIDAMOLE [Suspect]
     Active Substance: DIPYRIDAMOLE
     Dosage: UNK
  182. DILTIAZEM HYDROCHLORIDE [Suspect]
     Active Substance: DILTIAZEM HYDROCHLORIDE
     Indication: Hypertension
     Dosage: 360 MILLIGRAM, ONCE A DAY
     Route: 065
  183. DILTIAZEM HYDROCHLORIDE [Suspect]
     Active Substance: DILTIAZEM HYDROCHLORIDE
     Indication: Coronary artery disease
     Dosage: 36 MILLIGRAM, ONCE A DAY
     Route: 065
  184. DILTIAZEM HYDROCHLORIDE [Suspect]
     Active Substance: DILTIAZEM HYDROCHLORIDE
     Indication: Angina pectoris
     Dosage: 15 MILLIGRAM, ONCE A DAY
     Route: 065
  185. DULCOLAX NOS [Suspect]
     Active Substance: BISACODYL OR DOCUSATE SODIUM
     Indication: Constipation
     Dosage: 2 DOSAGE FORM, ONCE A DAY (2 PILLS, AS NEEDED)
     Route: 048
  186. DULCOLAX NOS [Suspect]
     Active Substance: BISACODYL OR DOCUSATE SODIUM
     Dosage: 1 DOSAGE FORM, ONCE A DAY
     Route: 065
  187. EX-LAX REGULAR STRENGTH STIMULANT LAXATIVE [Suspect]
     Active Substance: SENNOSIDES
     Indication: Pain
     Dosage: UNK
     Route: 065
  188. FLEXERIL [Suspect]
     Active Substance: CYCLOBENZAPRINE HYDROCHLORIDE
     Indication: Product used for unknown indication
     Dosage: 5 MILLIGRAM, 3 TIMES A DAY
     Route: 065
  189. FUROSEMIDE [Suspect]
     Active Substance: FUROSEMIDE
     Indication: Oedema
     Dosage: 40 MILLIGRAM, ONCE A DAY
     Route: 065
  190. FUROSEMIDE [Suspect]
     Active Substance: FUROSEMIDE
     Indication: Coronary artery disease
     Dosage: 20 MILLIGRAM, DAILY
     Route: 065
  191. GALANTAMINE HYDROBROMIDE [Suspect]
     Active Substance: GALANTAMINE HYDROBROMIDE
     Indication: Dementia
     Dosage: 16 MILLIGRAM, ONCE A DAY
     Route: 065
  192. GLUCOSAMINE [Suspect]
     Active Substance: GLUCOSAMINE
     Indication: Pain
     Dosage: 1000 MILLIGRAM, ONCE A DAY
     Route: 065
  193. GLUCOSAMINE [Suspect]
     Active Substance: GLUCOSAMINE
     Indication: Arthritis
     Dosage: 250 MILLIGRAM, ONCE A DAY
     Route: 065
  194. GLUCOSAMINE [Suspect]
     Active Substance: GLUCOSAMINE
     Dosage: 500 MILLIGRAM, ONCE A DAY
     Route: 065
  195. GLUCOSAMINE [Suspect]
     Active Substance: GLUCOSAMINE
     Dosage: 500 MILLIGRAM, ONE EVERY 5 DAYS
     Route: 065
  196. GLUCOSAMINE [Suspect]
     Active Substance: GLUCOSAMINE
     Dosage: 500 MILLIGRAM, EVERY HOUR
     Route: 065
  197. GLUCOSAMINE [Suspect]
     Active Substance: GLUCOSAMINE
     Dosage: 500 MILLIGRAM, EVERY OTHER DAY
     Route: 065
  198. GLUCOSAMINE [Suspect]
     Active Substance: GLUCOSAMINE
     Dosage: 500 MILLIGRAM, 4.8 HR
     Route: 065
  199. GLUCOSAMINE [Suspect]
     Active Substance: GLUCOSAMINE
     Dosage: 2500 MILLIGRAM, ONCE A DAY
     Route: 065
  200. GLUCOSAMINE [Suspect]
     Active Substance: GLUCOSAMINE
     Dosage: 500 MILLIGRAM, TWO TIMES A DAY
     Route: 065
  201. NITROGLYCERIN [Suspect]
     Active Substance: NITROGLYCERIN
     Indication: Coronary artery disease
     Dosage: 0.6 MILLIGRAM, ONCE A DAY
     Route: 065
  202. NITROGLYCERIN [Suspect]
     Active Substance: NITROGLYCERIN
     Indication: Chest pain
     Dosage: 0.4 MILLIGRAM, ONCE A DAY
     Route: 065
  203. NITROGLYCERIN [Suspect]
     Active Substance: NITROGLYCERIN
     Indication: Angina pectoris
     Dosage: 1.0 MILLIGRAM, ONCE A DAY
     Route: 065
  204. NITROGLYCERIN [Suspect]
     Active Substance: NITROGLYCERIN
     Dosage: 0.6 MILLIGRAM, ONCE A DAY
     Route: 061
  205. NITROGLYCERIN [Suspect]
     Active Substance: NITROGLYCERIN
     Dosage: 0.4 DOSAGE FORM, ONCE A DAY
     Route: 065
  206. NITROGLYCERIN [Suspect]
     Active Substance: NITROGLYCERIN
     Dosage: 1 DOSAGE FORM, ONCE A DAY
     Route: 065
  207. NITROGLYCERIN [Suspect]
     Active Substance: NITROGLYCERIN
     Dosage: UNK, ONCE A DAY, 0 MILLIGRAM
     Route: 065
  208. NITROGLYCERIN [Suspect]
     Active Substance: NITROGLYCERIN
     Dosage: 6 MILLIGRAM, ONCE A DAY
     Route: 061
  209. NITROGLYCERIN [Suspect]
     Active Substance: NITROGLYCERIN
     Dosage: 20 MILLIGRAM, ONCE A DAY
     Route: 065
  210. GLYCERIN [Suspect]
     Active Substance: GLYCERIN
     Indication: Product used for unknown indication
     Dosage: UNK
     Route: 065
  211. LACTULOSE [Suspect]
     Active Substance: LACTULOSE
     Indication: Constipation
     Dosage: 15 MILLILITER, ONCE A DAY
     Route: 048
  212. LACTULOSE [Suspect]
     Active Substance: LACTULOSE
     Dosage: 15 MILLIGRAM, ONCE A DAY
     Route: 048
  213. LEVOTHYROXINE [Suspect]
     Active Substance: LEVOTHYROXINE
     Indication: Thyroid disorder
     Dosage: 0.088 MILLIGRAM, ONCE A DAY, 0.09 MG ONCE A DAY
     Route: 048
  214. LEVOTHYROXINE [Suspect]
     Active Substance: LEVOTHYROXINE
     Indication: Radioactive iodine therapy
     Dosage: 0.8 MILLIGRAM, ONCE A DAY
     Route: 048
  215. LEVOTHYROXINE [Suspect]
     Active Substance: LEVOTHYROXINE
     Dosage: UNK, ONCE A DAY
     Route: 065
  216. LEVOTHYROXINE [Suspect]
     Active Substance: LEVOTHYROXINE
     Dosage: 0.9 MILLIGRAM, ONCE A DAY
     Route: 065
  217. LEVOTHYROXINE [Suspect]
     Active Substance: LEVOTHYROXINE
     Dosage: 0.09 MILLIGRAM, ONCE A DAY
     Route: 065
  218. LEVOTHYROXINE [Suspect]
     Active Substance: LEVOTHYROXINE
     Dosage: 622.0 MILLIGRAM, TWO TIMES A DAY
     Route: 065
  219. MAGNESIUM HYDROXIDE [Suspect]
     Active Substance: MAGNESIUM HYDROXIDE
     Indication: Constipation
     Dosage: 311 MG,1-2 TABLETS AT BED TIME (622 MG)
     Route: 065
  220. MAGNESIUM HYDROXIDE [Suspect]
     Active Substance: MAGNESIUM HYDROXIDE
     Dosage: 622 MILLIGRAM, ONCE A DAY
     Route: 065
  221. MAGNESIUM HYDROXIDE [Suspect]
     Active Substance: MAGNESIUM HYDROXIDE
     Dosage: 2 DOSAGE FORM, ONCE A DAY
     Route: 065
  222. MAGNESIUM HYDROXIDE [Suspect]
     Active Substance: MAGNESIUM HYDROXIDE
     Dosage: 1244 MILLIGRAM, ONCE A DAY
     Route: 065
  223. MAGNESIUM HYDROXIDE [Suspect]
     Active Substance: MAGNESIUM HYDROXIDE
     Dosage: UNK UNK, EVERY OTHER DAY
     Route: 065
  224. MAGNESIUM HYDROXIDE [Suspect]
     Active Substance: MAGNESIUM HYDROXIDE
     Dosage: UNK, 1 EVERY ONE DAY
     Route: 065
  225. MAGNESIUM HYDROXIDE [Suspect]
     Active Substance: MAGNESIUM HYDROXIDE
     Dosage: UNK, DAILY, 1-2
     Route: 065
  226. MAGNESIUM HYDROXIDE [Suspect]
     Active Substance: MAGNESIUM HYDROXIDE
     Dosage: 622 MILLIGRAM, TWO TIMES A DAY
     Route: 065
  227. MAGNESIUM HYDROXIDE [Suspect]
     Active Substance: MAGNESIUM HYDROXIDE
     Dosage: 1240 MILLIGRAM, ONCE A DAY
     Route: 065
  228. MORPHINE SULFATE [Suspect]
     Active Substance: MORPHINE SULFATE
     Indication: Pain
     Dosage: 10 MILLIGRAM, ONCE A DAY
     Route: 065
  229. MORPHINE SULFATE [Suspect]
     Active Substance: MORPHINE SULFATE
     Indication: Fibromyalgia
     Dosage: UNK, ONCE EVERY 5 DAYS
     Route: 065
  230. MORPHINE SULFATE [Suspect]
     Active Substance: MORPHINE SULFATE
     Dosage: 1 DOSAGE FORM, ONCE A DAY
     Route: 065
  231. MORPHINE SULFATE [Suspect]
     Active Substance: MORPHINE SULFATE
     Dosage: 10 MILLIGRAM, ONCE A DAY
     Route: 030
  232. MORPHINE SULFATE [Suspect]
     Active Substance: MORPHINE SULFATE
     Dosage: 2 DOSAGE FORM, ONCE A DAY
     Route: 065
  233. NITROGLYCERIN [Suspect]
     Active Substance: NITROGLYCERIN
     Indication: Coronary artery disease
     Dosage: UNK
     Route: 065
  234. NITROGLYCERIN [Suspect]
     Active Substance: NITROGLYCERIN
     Indication: Angina pectoris
  235. NITROGLYCERIN [Suspect]
     Active Substance: NITROGLYCERIN
     Indication: Coronary artery disease
     Dosage: UNK
     Route: 060
  236. NITROGLYCERIN [Suspect]
     Active Substance: NITROGLYCERIN
     Indication: Chest pain
     Dosage: 0.6 MILLIGRAM, EVERY HOUR, PATCH AT BEDTIME
     Route: 061
  237. NITROGLYCERIN [Suspect]
     Active Substance: NITROGLYCERIN
     Indication: Angina pectoris
     Dosage: 0.4 MILLIGRAM, ONCE A DAY
     Route: 065
  238. NITROGLYCERIN [Suspect]
     Active Substance: NITROGLYCERIN
     Dosage: 1 DOSAGE FORM, ONCE A DAY
     Route: 061
  239. NITROGLYCERIN [Suspect]
     Active Substance: NITROGLYCERIN
     Dosage: 0.6 MILLIGRAM, ONCE A DAY
     Route: 061
  240. NITROGLYCERIN [Suspect]
     Active Substance: NITROGLYCERIN
     Dosage: 4 MILLIGRAM, ONCE A DAY
     Route: 061
  241. NITROGLYCERIN [Suspect]
     Active Substance: NITROGLYCERIN
     Dosage: 1 DOSAGE FORM, ONCE A DAY
     Route: 065
  242. ASPIRIN [Suspect]
     Active Substance: ASPIRIN
     Indication: Constipation
     Dosage: 620 MILLIGRAM, ONCE A DAY
     Route: 065
  243. NORVASC [Suspect]
     Active Substance: AMLODIPINE BESYLATE
     Indication: Product used for unknown indication
     Dosage: 5 MILLIGRAM, ONCE A DAY
     Route: 065
  244. MORPHINE SULFATE [Suspect]
     Active Substance: MORPHINE SULFATE
     Indication: Pain
     Dosage: 10 MILLIGRAM, ONCE A DAY (AT BED TIME)
     Route: 030
  245. MORPHINE SULFATE [Suspect]
     Active Substance: MORPHINE SULFATE
     Indication: Fibromyalgia
     Dosage: UNK, TWO TIMES A DAY
     Route: 065
  246. MORPHINE SULFATE [Suspect]
     Active Substance: MORPHINE SULFATE
     Dosage: 2 DOSAGE FORM, ONCE A DAY
     Route: 065
  247. MORPHINE SULFATE [Suspect]
     Active Substance: MORPHINE SULFATE
     Dosage: 1 DOSAGE FORM, ONCE A DAY
     Route: 065
  248. MORPHINE SULFATE [Suspect]
     Active Substance: MORPHINE SULFATE
     Dosage: UNK
     Route: 065
  249. MORPHINE SULFATE [Suspect]
     Active Substance: MORPHINE SULFATE
     Dosage: 100 MILLIGRAM, ONCE A DAY
     Route: 065
  250. OXAZEPAM [Suspect]
     Active Substance: OXAZEPAM
     Indication: Insomnia
     Dosage: 15 MILLIGRAM, ONCE A DAY
     Route: 065
  251. OXAZEPAM [Suspect]
     Active Substance: OXAZEPAM
     Indication: Hypertension
     Dosage: 40 MILLIGRAM, ONCE A DAY
     Route: 065
  252. OXAZEPAM [Suspect]
     Active Substance: OXAZEPAM
     Indication: Coronary artery disease
  253. OXAZEPAM [Suspect]
     Active Substance: OXAZEPAM
     Indication: Insomnia
     Dosage: 40 MILLIGRAM, ONCE A DAY
     Route: 065
  254. OXAZEPAM [Suspect]
     Active Substance: OXAZEPAM
     Indication: Hypertension
     Dosage: 15 MILLIGRAM, ONCE A DAY
     Route: 065
  255. OXAZEPAM [Suspect]
     Active Substance: OXAZEPAM
     Indication: Coronary artery disease
     Dosage: 20 MILLIGRAM
     Route: 048
  256. OXAZEPAM [Suspect]
     Active Substance: OXAZEPAM
     Indication: Angina pectoris
  257. OXCARBAZEPINE [Suspect]
     Active Substance: OXCARBAZEPINE
     Indication: Product used for unknown indication
     Dosage: UNK
     Route: 065
  258. ACETAMINOPHEN [Suspect]
     Active Substance: ACETAMINOPHEN
     Indication: Pain
     Dosage: 650 MILLIGRAM
     Route: 065
  259. ACETAMINOPHEN [Suspect]
     Active Substance: ACETAMINOPHEN
     Indication: Chest pain
  260. POTASSIUM SORBATE [Suspect]
     Active Substance: POTASSIUM SORBATE
     Indication: Product used for unknown indication
     Dosage: UNK
     Route: 065
  261. PERSANTINE [Suspect]
     Active Substance: DIPYRIDAMOLE
     Indication: Cerebrovascular accident
     Dosage: 2 DOSAGE FORM, ONCE A DAY
     Route: 065
  262. PERSANTINE [Suspect]
     Active Substance: DIPYRIDAMOLE
     Dosage: 0.5 MILLIGRAM, TWO TIMES A DAY
     Route: 065
  263. PERSANTINE [Suspect]
     Active Substance: DIPYRIDAMOLE
     Dosage: 1 DOSAGE FORM, TWO TIMES A DAY
     Route: 065
  264. PERSANTINE [Suspect]
     Active Substance: DIPYRIDAMOLE
     Dosage: 1 DOSAGE FORM (0.5 DAY)
     Route: 065
  265. PHENYLEPHRINE HCL [Suspect]
     Active Substance: PHENYLEPHRINE HYDROCHLORIDE
     Indication: Pain
     Dosage: UNK
     Route: 065
  266. POLYSORBATE 85 [Suspect]
     Active Substance: POLYSORBATE 85
     Indication: Insomnia
     Dosage: UNK
     Route: 065
  267. QUINAPRIL [Suspect]
     Active Substance: QUINAPRIL
     Indication: Hypertension
     Dosage: 40 MILLIGRAM, ONCE A DAY
     Route: 065
  268. QUINAPRIL [Suspect]
     Active Substance: QUINAPRIL
     Indication: Coronary artery disease
  269. QUINAPRIL [Suspect]
     Active Substance: QUINAPRIL
     Indication: Chest pain
  270. QUINAPRIL [Suspect]
     Active Substance: QUINAPRIL
     Indication: Angina pectoris
  271. QUINAPRIL HYDROCHLORIDE AND HYDROCHLOROTHIAZIDE [Suspect]
     Active Substance: HYDROCHLOROTHIAZIDE\QUINAPRIL HYDROCHLORIDE
     Indication: Hypertension
     Dosage: 20 MILLIGRAM, ONCE A DAY
     Route: 065
  272. QUINAPRIL HYDROCHLORIDE AND HYDROCHLOROTHIAZIDE [Suspect]
     Active Substance: HYDROCHLOROTHIAZIDE\QUINAPRIL HYDROCHLORIDE
     Indication: Coronary artery disease
     Dosage: 40 MILLIGRAM, ONCE A DAY
     Route: 065
  273. ALBUTEROL [Suspect]
     Active Substance: ALBUTEROL
     Indication: Coronary artery disease
     Dosage: 200 MICROGRAM, FOUR TIMES/DAY (100 MCG/PUFF)
     Route: 065
  274. ALBUTEROL [Suspect]
     Active Substance: ALBUTEROL
     Indication: Hypertension
     Dosage: 100 MILLIGRAM, ONCE A DAY
     Route: 065
  275. ALBUTEROL [Suspect]
     Active Substance: ALBUTEROL
     Indication: Angina pectoris
     Dosage: 400 MILLIGRAM, FOUR TIMES/DAY
     Route: 065
  276. ALBUTEROL [Suspect]
     Active Substance: ALBUTEROL
     Indication: Chest pain
     Dosage: 200 MILLIGRAM, FOUR TIMES/DAY
     Route: 065
  277. ALBUTEROL [Suspect]
     Active Substance: ALBUTEROL
     Dosage: 100 MICROGRAM, ONCE A DAY, PER INHALATION, DAILY
     Route: 065
  278. ALBUTEROL [Suspect]
     Active Substance: ALBUTEROL
     Dosage: UNK
     Route: 065
  279. ALBUTEROL [Suspect]
     Active Substance: ALBUTEROL
     Dosage: 800 MILLIGRAM, ONCE A DAY
     Route: 065
  280. SALICYLAMIDE [Suspect]
     Active Substance: SALICYLAMIDE
     Indication: Pain
     Dosage: UNK
     Route: 065
  281. SPIRIVA [Suspect]
     Active Substance: TIOTROPIUM BROMIDE MONOHYDRATE
     Indication: Chronic obstructive pulmonary disease
     Dosage: 18 MICROGRAM, ONCE A DAY
     Route: 065
  282. SPIRIVA [Suspect]
     Active Substance: TIOTROPIUM BROMIDE MONOHYDRATE
     Indication: Asthma
     Dosage: 1 DOSAGE FORM, ONCE A DAY
     Route: 065
  283. SPIRIVA [Suspect]
     Active Substance: TIOTROPIUM BROMIDE MONOHYDRATE
     Dosage: 18 MILLIGRAM, ONCE A DAY
     Route: 065
  284. TIOTROPIUM BROMIDE [Suspect]
     Active Substance: TIOTROPIUM BROMIDE
     Indication: Product used for unknown indication
     Dosage: UNK
     Route: 065
  285. TIOTROPIUM BROMIDE [Suspect]
     Active Substance: TIOTROPIUM BROMIDE
     Dosage: 18 MILLIGRAM, ONCE A DAY
     Route: 065
  286. TIOTROPIUM BROMIDE [Suspect]
     Active Substance: TIOTROPIUM BROMIDE
     Indication: Chronic obstructive pulmonary disease
     Dosage: 18 MICROGRAM, ONCE A DAY
     Route: 065
  287. TIOTROPIUM BROMIDE [Suspect]
     Active Substance: TIOTROPIUM BROMIDE
     Dosage: 18 MILLIGRAM
     Route: 065
  288. CRANBERRY [Suspect]
     Active Substance: CRANBERRY
     Indication: Bladder disorder
     Dosage: 500 MILLIGRAM, 3 TIMES A DAY
     Route: 065
  289. CRANBERRY [Suspect]
     Active Substance: CRANBERRY
     Dosage: UNK
     Route: 065
  290. CRANBERRY [Suspect]
     Active Substance: CRANBERRY
     Indication: Product used for unknown indication
     Dosage: UNK
     Route: 065
  291. VITAMIN D [Suspect]
     Active Substance: VITAMIN D NOS
     Indication: Product used for unknown indication
     Dosage: UNK
     Route: 065
  292. ACETAMINOPHEN [Concomitant]
     Active Substance: ACETAMINOPHEN
     Indication: Fibromyalgia
     Dosage: UNK
     Route: 065
  293. ACETAMINOPHEN [Concomitant]
     Active Substance: ACETAMINOPHEN
     Indication: Pain
     Dosage: 650 MILLIGRAM, ONCE A DAY
     Route: 065
  294. ASPIRIN\DIPYRIDAMOLE [Concomitant]
     Active Substance: ASPIRIN\DIPYRIDAMOLE
     Indication: Cerebrovascular accident
     Dosage: UNK
     Route: 065
  295. ASCORBIC ACID [Concomitant]
     Active Substance: ASCORBIC ACID
     Indication: Product used for unknown indication
     Dosage: UNK
     Route: 065
  296. ASCORBIC ACID\CRANBERRY [Concomitant]
     Active Substance: ASCORBIC ACID\CRANBERRY
     Indication: Product used for unknown indication
     Dosage: 500 MILLIGRAM, ONCE A DAY
     Route: 065
  297. ASPIRIN [Concomitant]
     Active Substance: ASPIRIN
     Indication: Product used for unknown indication
     Dosage: UNK
     Route: 065
  298. CRANBERRY [Concomitant]
     Active Substance: CRANBERRY
     Indication: Bladder disorder
     Dosage: 500 MILLIGRAM, 3 TIMES A DAY
     Route: 065
  299. CRANBERRY [Concomitant]
     Active Substance: CRANBERRY
     Indication: Product used for unknown indication
     Dosage: 500 MILLIGRAM, 3 TIMES A DAY
     Route: 065
  300. CRANBERRY [Concomitant]
     Active Substance: CRANBERRY
     Indication: Bladder disorder
  301. ISPAGHULA EXTRACT\PSYLLIUM [Concomitant]
     Active Substance: HERBALS\PLANTAGO OVATA SEED\PLANTAGO SEED
     Indication: Product used for unknown indication
     Dosage: UNK
     Route: 065
  302. FIBRE SOLUBLE [Concomitant]
     Indication: Product used for unknown indication
     Dosage: UNK
     Route: 065
  303. MAGNESIUM CHLORIDE [Concomitant]
     Active Substance: MAGNESIUM CHLORIDE
     Indication: Constipation
     Dosage: UNK
     Route: 048
  304. PHOSPHORIC ACID [Concomitant]
     Active Substance: PHOSPHORIC ACID
     Indication: Product used for unknown indication
     Dosage: UNK
     Route: 065
  305. PSYLLIUM HUSK [Concomitant]
     Active Substance: PSYLLIUM HUSK
     Indication: Constipation
     Dosage: 500 MILLIGRAM, 3 TIMES A DAY
     Route: 065
  306. ZINC [Concomitant]
     Active Substance: ZINC
     Indication: Product used for unknown indication
     Dosage: UNK
     Route: 065
  307. CALCIUM POLYCARBOPHIL [Concomitant]
     Active Substance: CALCIUM POLYCARBOPHIL
     Indication: Product used for unknown indication
     Dosage: UNK
     Route: 065
  308. VITAMIN C [Concomitant]
     Active Substance: ASCORBIC ACID
     Indication: Product used for unknown indication
     Dosage: UNK
     Route: 065
  309. CRANBERRY [Concomitant]
     Active Substance: CRANBERRY
     Indication: Product used for unknown indication
     Dosage: 500 MILLIGRAM, ONCE A DAY
     Route: 065
  310. ALUMINUM HYDROXIDE\MAGNESIUM HYDROXIDE [Suspect]
     Active Substance: ALUMINUM HYDROXIDE\MAGNESIUM HYDROXIDE

REACTIONS (17)
  - Balance disorder [Recovered/Resolved]
  - Blood calcium decreased [Recovered/Resolved]
  - Cognitive disorder [Recovered/Resolved]
  - Constipation [Recovered/Resolved]
  - Creatinine renal clearance decreased [Recovered/Resolved]
  - Depressed level of consciousness [Recovered/Resolved]
  - Fall [Recovered/Resolved]
  - Hypotension [Recovered/Resolved]
  - Mobility decreased [Recovered/Resolved]
  - Multiple drug therapy [Recovered/Resolved]
  - Orthostatic hypotension [Recovered/Resolved]
  - Pain [Recovered/Resolved]
  - Sedation complication [Recovered/Resolved]
  - Sedation [Recovered/Resolved]
  - Bladder disorder [Recovered/Resolved]
  - Dementia [Recovered/Resolved]
  - Toxicity to various agents [Recovered/Resolved]
